FAERS Safety Report 12168506 (Version 5)
Quarter: 2018Q4

REPORT INFORMATION
  Report Type: Report from Study
  Country: JP (occurrence: JP)
  Receive Date: 20160310
  Receipt Date: 20181105
  Transmission Date: 20190204
  Serious: Yes (Hospitalization, Other)
  Sender: FDA-Public Use
  Company Number: JP-AMGEN-JPNNI2016030268

PATIENT
  Age: 72 Year
  Sex: Male

DRUGS (1)
  1. DARBEPOETIN ALFA [Suspect]
     Active Substance: DARBEPOETIN ALFA
     Indication: PRODUCT USED FOR UNKNOWN INDICATION
     Dosage: UNK
     Route: 042
     Dates: start: 20150601

REACTIONS (15)
  - Pain [Recovering/Resolving]
  - Arteriovenous fistula site complication [Recovering/Resolving]
  - Intermittent claudication [Recovering/Resolving]
  - Intermittent claudication [Recovering/Resolving]
  - Intermittent claudication [Recovering/Resolving]
  - Gastrointestinal haemorrhage [Recovering/Resolving]
  - Pain [Recovering/Resolving]
  - Pain [Recovering/Resolving]
  - Intermittent claudication [Recovering/Resolving]
  - Hospitalisation [Recovering/Resolving]
  - Pain [Recovering/Resolving]
  - Pain [Recovering/Resolving]
  - Intermittent claudication [Recovering/Resolving]
  - Pain [Recovering/Resolving]
  - Intermittent claudication [Recovering/Resolving]

NARRATIVE: CASE EVENT DATE: 20150625
